FAERS Safety Report 6918571-X (Version None)
Quarter: 2010Q3

REPORT INFORMATION
  Report Type: 
  Country: None (occurrence: None)
  Receive Date: 20100722
  Receipt Date: 20090924
  Transmission Date: 20110219
  Serious: Yes (Other)
  Sender: FDA-Public Use
  Company Number: CERZ-1000700

PATIENT
  Age: 38 Year
  Sex: Male

DRUGS (1)
  1. CEREZYME [Suspect]
     Indication: GAUCHER'S DISEASE
     Dosage: 3600 U, Q2W, INTRAVENOUS
     Route: 042
     Dates: start: 20031125

REACTIONS (1)
  - BACK PAIN [None]
